FAERS Safety Report 23123726 (Version 1)
Quarter: 2023Q4

REPORT INFORMATION
  Report Type: Spontaneous
  Country: GB (occurrence: GB)
  Receive Date: 20231030
  Receipt Date: 20231030
  Transmission Date: 20240109
  Serious: Yes (Other)
  Sender: FDA-Public Use
  Company Number: None

PATIENT
  Age: 38 Year
  Sex: Female

DRUGS (1)
  1. MIRENA [Suspect]
     Active Substance: LEVONORGESTREL
     Indication: Adverse drug reaction
     Dosage: 20?G/DAY
     Route: 015
     Dates: start: 20230930, end: 20231005

REACTIONS (4)
  - Medication error [Unknown]
  - Dyspnoea [Recovering/Resolving]
  - Abdominal pain upper [None]
  - Heavy menstrual bleeding [None]

NARRATIVE: CASE EVENT DATE: 20231002
